FAERS Safety Report 5723620-0 (Version None)
Quarter: 2008Q2

REPORT INFORMATION
  Report Type: 
  Country: None (occurrence: None)
  Receive Date: 20080425
  Receipt Date: 20080417
  Transmission Date: 20081010
  Serious: Yes (Other)
  Sender: FDA-Public Use
  Company Number: 2008-02479

PATIENT
  Age: 37 Year
  Sex: Female

DRUGS (2)
  1. FERRLECIT [Suspect]
     Indication: IRON DEFICIENCY
     Dosage: 125 MG, SINGLE, INTRAVENOUS
     Route: 042
     Dates: start: 20080405, end: 20080405
  2. ESTROPROGESTINS (ESTROGEN NOS) [Concomitant]

REACTIONS (1)
  - MUCOUS MEMBRANE DISORDER [None]
